FAERS Safety Report 8475489-1 (Version None)
Quarter: 2012Q2

REPORT INFORMATION
  Report Type: 
  Country: None (occurrence: None)
  Receive Date: 20120628
  Receipt Date: 20120625
  Transmission Date: 20120825
  Serious: Yes (Hospitalization)
  Sender: FDA-Public Use
  Company Number: FR-ROCHE-1081489

PATIENT
  Age: 72 Year
  Sex: Male

DRUGS (12)
  1. PREDNISONE TAB [Concomitant]
  2. CELECTOL [Concomitant]
  3. ACTEMRA [Suspect]
     Dates: start: 20120424
  4. SULFASALAZINE [Concomitant]
  5. ACTEMRA [Suspect]
     Dates: start: 20120228
  6. ACTEMRA [Suspect]
     Dates: start: 20120327
  7. ACETAMINOPHEN [Concomitant]
  8. CLOPIDOGREL BISULFATE AND ASPIRIN [Concomitant]
  9. ACTEMRA [Suspect]
     Indication: RHEUMATOID ARTHRITIS
     Route: 042
     Dates: start: 20120130
  10. OLMETEC [Concomitant]
  11. ATORVASTATIN [Concomitant]
  12. OMEPRAZOLE [Concomitant]

REACTIONS (1)
  - LEUKOCYTOCLASTIC VASCULITIS [None]
